FAERS Safety Report 7571025-2 (Version None)
Quarter: 2011Q2

REPORT INFORMATION
  Report Type: 
  Country: None (occurrence: None)
  Receive Date: 20110622
  Receipt Date: 20110622
  Transmission Date: 20111010
  Serious: No
  Sender: FDA-Public Use
  Company Number: None

PATIENT
  Age: 79 Year
  Sex: Male
  Weight: 79.3795 kg

DRUGS (1)
  1. SIMVASTATIN [Suspect]
     Indication: BLOOD CHOLESTEROL INCREASED
     Dosage: 1 TABLET PM DAILY MOUTH
     Route: 048

REACTIONS (5)
  - ARTHRALGIA [None]
  - BACK PAIN [None]
  - VEIN DISORDER [None]
  - ARTERIAL DISORDER [None]
  - MUSCULAR WEAKNESS [None]
